FAERS Safety Report 8190258-8 (Version None)
Quarter: 2012Q1

REPORT INFORMATION
  Report Type: 
  Country: None (occurrence: None)
  Receive Date: 20120305
  Receipt Date: 20120218
  Transmission Date: 20120608
  Serious: Yes (Death)
  Sender: FDA-Public Use
  Company Number: CRC-11-344

PATIENT
  Age: 55 Year
  Sex: Male

DRUGS (2)
  1. CITALOPRAM HYDROBROMIDE [Suspect]
     Indication: INSOMNIA
     Dosage: TOOK 1 TABLET ONLY; ORAL
     Route: 048
     Dates: start: 20110512
  2. CITALOPRAM HYDROBROMIDE [Suspect]
     Indication: ANXIETY
     Dosage: TOOK 1 TABLET ONLY; ORAL
     Route: 048
     Dates: start: 20110512

REACTIONS (1)
  - COMPLETED SUICIDE [None]
